FAERS Safety Report 5156005-9 (Version None)
Quarter: 2006Q4

REPORT INFORMATION
  Report Type: 
  Country: None (occurrence: None)
  Receive Date: 20061122
  Receipt Date: 20061109
  Transmission Date: 20070319
  Serious: Yes (Hospitalization)
  Sender: FDA-Public Use
  Company Number: NLWYE480109NOV06

PATIENT
  Age: 24 Year
  Sex: Female

DRUGS (1)
  1. ENBREL [Suspect]
     Indication: RHEUMATOID ARTHRITIS
     Dates: start: 19991201, end: 20050527

REACTIONS (4)
  - AMNIOTIC FLUID VOLUME DECREASED [None]
  - FATIGUE [None]
  - PLACENTAL INSUFFICIENCY [None]
  - PREGNANCY [None]
